FAERS Safety Report 9460768 (Version 5)
Quarter: 2014Q2

REPORT INFORMATION
  Report Type: Report from Study
  Country: JP (occurrence: JP)
  Receive Date: 20130815
  Receipt Date: 20140502
  Transmission Date: 20141212
  Serious: Yes (Other)
  Sender: FDA-Public Use
  Company Number: JP-GLAXOSMITHKLINE-B0870107A

PATIENT
  Age: 77 Year
  Sex: Male
  Weight: 50 kg

DRUGS (9)
  1. VOTRIENT 200MG [Suspect]
     Indication: MYXOFIBROSARCOMA
     Dosage: 800MG PER DAY
     Route: 048
     Dates: start: 20130214
  2. VOTRIENT 200MG [Suspect]
     Indication: MYXOFIBROSARCOMA
     Dosage: 800MG PER DAY
     Route: 048
     Dates: end: 20130220
  3. VOTRIENT 200MG [Suspect]
     Indication: MYXOFIBROSARCOMA
     Dosage: 600MG PER DAY
     Route: 048
     Dates: start: 20130221, end: 20130303
  4. VOTRIENT 200MG [Suspect]
     Indication: MYXOFIBROSARCOMA
     Dosage: 400MG PER DAY
     Route: 048
     Dates: start: 20130304, end: 20130310
  5. VOTRIENT 200MG [Suspect]
     Indication: MYXOFIBROSARCOMA
     Dosage: 200MG PER DAY
     Route: 048
     Dates: start: 20130311, end: 20131029
  6. AMLODIN OD [Concomitant]
     Indication: HYPERTENSION
     Route: 048
  7. SEIBULE [Concomitant]
     Indication: DIABETES MELLITUS
     Route: 048
  8. JANUVIA [Concomitant]
     Indication: DIABETES MELLITUS
     Route: 048
  9. CRESTOR [Concomitant]
     Indication: LIPID METABOLISM DISORDER
     Route: 048

REACTIONS (5)
  - Renal impairment [Recovered/Resolved]
  - Nausea [Recovered/Resolved]
  - Hypertension [Recovered/Resolved]
  - Nausea [Recovered/Resolved]
  - Diarrhoea [Recovered/Resolved]
